FAERS Safety Report 7990745-9 (Version None)
Quarter: 2011Q4

REPORT INFORMATION
  Report Type: 
  Country: None (occurrence: None)
  Receive Date: 20111219
  Receipt Date: 20111219
  Transmission Date: 20120403
  Serious: Yes (Death)
  Sender: FDA-Public Use
  Company Number: None

PATIENT
  Age: 59 Year
  Sex: Male
  Weight: 79.832 kg

DRUGS (1)
  1. KINERET [Suspect]
     Indication: GOUT
     Dosage: 100MG
     Route: 058
     Dates: start: 20110427, end: 20110711

REACTIONS (5)
  - RASH [None]
  - BONE MARROW FAILURE [None]
  - LEUKOPENIA [None]
  - TRANSFUSION ASSOCIATED GRAFT VERSUS HOST DISEASE [None]
  - SEPSIS [None]
